FAERS Safety Report 7770258-X (Version None)
Quarter: 2011Q3

REPORT INFORMATION
  Report Type: 
  Country: None (occurrence: None)
  Receive Date: 20110922
  Receipt Date: 20110415
  Transmission Date: 20111222
  Serious: No
  Sender: FDA-Public Use
  Company Number: US-ASTRAZENECA-2011SE22200

PATIENT
  Age: 38 Year
  Sex: Male

DRUGS (3)
  1. EFFEXOR [Concomitant]
  2. SEROQUEL XR [Suspect]
     Indication: BIPOLAR DISORDER
     Route: 048
     Dates: start: 20090101
  3. XANAX [Concomitant]

REACTIONS (4)
  - DRUG DOSE OMISSION [None]
  - EUPHORIC MOOD [None]
  - EPISTAXIS [None]
  - INSOMNIA [None]
